FAERS Safety Report 21963476 (Version 3)
Quarter: 2023Q2

REPORT INFORMATION
  Report Type: Report from Study
  Country: US (occurrence: US)
  Receive Date: 20230207
  Receipt Date: 20230418
  Transmission Date: 20230722
  Serious: Yes (Hospitalization, Other)
  Sender: FDA-Public Use
  Company Number: US-ABBVIE-4295121

PATIENT
  Age: 50 Year
  Sex: Female

DRUGS (2)
  1. HUMIRA [Suspect]
     Active Substance: ADALIMUMAB
     Indication: Uveitis
     Dosage: CITRATE FREE?FORM STRENGTH: 40?FORM STRENGTH UNITS: MG
     Route: 058
     Dates: start: 20230201
  2. HUMIRA [Suspect]
     Active Substance: ADALIMUMAB
     Indication: Rheumatoid arthritis
     Dosage: CITRATE FREE?FORM STRENGTH: 40?FORM STRENGTH UNITS: MG
     Route: 058
     Dates: start: 20221103

REACTIONS (6)
  - Gastrointestinal obstruction [Recovered/Resolved]
  - Gastrointestinal polyp [Recovered/Resolved]
  - Injection site erythema [Recovered/Resolved]
  - Hypotension [Unknown]
  - Injection site swelling [Not Recovered/Not Resolved]
  - Injection site pruritus [Not Recovered/Not Resolved]

NARRATIVE: CASE EVENT DATE: 20221229
